FAERS Safety Report 17902480 (Version 2)
Quarter: 2020Q4

REPORT INFORMATION
  Report Type: Spontaneous
  Country: US (occurrence: US)
  Receive Date: 20200616
  Receipt Date: 20201014
  Transmission Date: 20210113
  Serious: Yes (Hospitalization, Other)
  Sender: FDA-Public Use
  Company Number: US-SA-2020SA152969

PATIENT

DRUGS (5)
  1. OXYCODONE HYDROCHLORIDE. [Suspect]
     Active Substance: OXYCODONE HYDROCHLORIDE
     Dosage: UNK
  2. AMBIEN [Suspect]
     Active Substance: ZOLPIDEM TARTRATE
     Dosage: 10 MG, 6ID
     Dates: start: 2004
  3. DIAZEPAM. [Suspect]
     Active Substance: DIAZEPAM
     Dosage: 5 MG, QID
  4. HYDROMORPHONE [Suspect]
     Active Substance: HYDROMORPHONE
  5. OXYCODONE [Suspect]
     Active Substance: OXYCODONE

REACTIONS (13)
  - Hospitalisation [Unknown]
  - Hernia [Unknown]
  - Unevaluable event [Unknown]
  - Drug use disorder [Unknown]
  - Rectocele [Unknown]
  - Pain [Unknown]
  - Surgery [Unknown]
  - Insomnia [Unknown]
  - Muscle spasms [Unknown]
  - Drug withdrawal syndrome [Unknown]
  - Post procedural complication [Unknown]
  - Constipation [Unknown]
  - Screaming [Unknown]
